FAERS Safety Report 9764633 (Version 1)
Quarter: 2013Q4

REPORT INFORMATION
  Report Type: Spontaneous
  Country: US (occurrence: None)
  Receive Date: 20131216
  Receipt Date: 20131216
  Transmission Date: 20140711
  Serious: Yes (Death)
  Sender: FDA-Public Use
  Company Number: None

PATIENT
  Age: 72 Year
  Sex: Male
  Weight: 104.33 kg

DRUGS (1)
  1. AVASTIN [Suspect]
     Indication: LUNG NEOPLASM MALIGNANT
     Route: 042

REACTIONS (8)
  - Haemorrhage [None]
  - Cardiac failure congestive [None]
  - Dyspnoea [None]
  - Oedema [None]
  - Speech disorder [None]
  - Fatigue [None]
  - Activities of daily living impaired [None]
  - Gait disturbance [None]
